FAERS Safety Report 25320341 (Version 1)
Quarter: 2025Q2

REPORT INFORMATION
  Report Type: Spontaneous
  Country: JP (occurrence: JP)
  Receive Date: 20250515
  Receipt Date: 20250515
  Transmission Date: 20250717
  Serious: Yes (Other)
  Sender: PFIZER
  Company Number: JP-PFIZER INC-PV202500056751

PATIENT
  Age: 84 Year
  Sex: Male
  Weight: 43.5 kg

DRUGS (7)
  1. METRONIDAZOLE [Suspect]
     Active Substance: METRONIDAZOLE
     Indication: Abscess
     Dosage: 500 MG, 4X/DAY
     Route: 041
     Dates: start: 20250221, end: 20250403
  2. TENELIGLIPTIN [Concomitant]
     Active Substance: TENELIGLIPTIN
  3. IMEGLIMIN HYDROCHLORIDE [Concomitant]
     Active Substance: IMEGLIMIN HYDROCHLORIDE
  4. NOVORAPID [Concomitant]
     Active Substance: INSULIN ASPART
  5. INSULIN GLARGINE [Concomitant]
     Active Substance: INSULIN GLARGINE
  6. CEFMETAZOLE [Concomitant]
     Active Substance: CEFMETAZOLE
     Dates: start: 20250302
  7. FLAGYL [Concomitant]
     Active Substance: METRONIDAZOLE\METRONIDAZOLE HYDROCHLORIDE
     Indication: Abscess
     Dosage: 2000 MG, DAILY
     Route: 048
     Dates: start: 20250218, end: 20250220

REACTIONS (3)
  - Toxic encephalopathy [Recovering/Resolving]
  - Renal impairment [Unknown]
  - COVID-19 [Unknown]

NARRATIVE: CASE EVENT DATE: 20250320
